FAERS Safety Report 5218186-8 (Version None)
Quarter: 2007Q1

REPORT INFORMATION
  Report Type: 
  Country: None (occurrence: None)
  Receive Date: 20070124
  Receipt Date: 20070118
  Transmission Date: 20070707
  Serious: Yes (Other)
  Sender: FDA-Public Use
  Company Number: US-PFIZER INC-2006089653

PATIENT
  Sex: Male

DRUGS (1)
  1. LIPITOR [Suspect]
     Dosage: DAILY DOSE:20MG

REACTIONS (7)
  - AMNESIA [None]
  - BALANCE DISORDER [None]
  - CONFUSIONAL STATE [None]
  - DEPRESSION [None]
  - FATIGUE [None]
  - IRRITABILITY [None]
  - NEUROPATHY PERIPHERAL [None]
